FAERS Safety Report 6598549-9 (Version None)
Quarter: 2010Q1

REPORT INFORMATION
  Report Type: 
  Country: None (occurrence: None)
  Receive Date: 20100224
  Receipt Date: 20050120
  Transmission Date: 20100710
  Serious: No
  Sender: FDA-Public Use
  Company Number: US-ALLERGAN-200500476

PATIENT
  Age: 33 Year
  Sex: Female
  Weight: 61.364 kg

DRUGS (4)
  1. BOTOX COSMETIC [Suspect]
     Indication: SKIN WRINKLING
     Dosage: 20UNITS, SINGLE
     Route: 030
     Dates: start: 20050119
  2. BOTOX COSMETIC [Suspect]
     Dosage: 25UNITS, SINGLE
     Route: 030
     Dates: start: 20050119
  3. IBUPROFEN [Concomitant]
     Indication: DRUG USE FOR UNKNOWN INDICATION
  4. PROACTIV [Concomitant]
     Indication: ACNE
     Route: 061

REACTIONS (4)
  - DYSKINESIA [None]
  - HEADACHE [None]
  - LOSS OF CONSCIOUSNESS [None]
  - MYDRIASIS [None]
